FAERS Safety Report 13455279 (Version 1)
Quarter: 2017Q2

REPORT INFORMATION
  Report Type: Spontaneous
  Country: GB (occurrence: GB)
  Receive Date: 20170418
  Receipt Date: 20170418
  Transmission Date: 20170830
  Serious: Yes (Other)
  Sender: FDA-Public Use
  Company Number: GB-MYLANLABS-2017M1023318

PATIENT

DRUGS (6)
  1. CLARITHROMYCIN. [Suspect]
     Active Substance: CLARITHROMYCIN
     Indication: LOCALISED INFECTION
     Route: 048
     Dates: start: 20170321, end: 20170325
  2. EVACAL D3 CHEWABLE [Concomitant]
  3. ASPIRIN. [Concomitant]
     Active Substance: ASPIRIN
  4. FUROSEMIDE. [Concomitant]
     Active Substance: FUROSEMIDE
  5. PREDNISOLONE. [Concomitant]
     Active Substance: PREDNISOLONE
  6. LANSOPRAZOLE. [Concomitant]
     Active Substance: LANSOPRAZOLE

REACTIONS (2)
  - Balance disorder [Recovered/Resolved]
  - Paraesthesia [Recovered/Resolved]

NARRATIVE: CASE EVENT DATE: 20170323
